FAERS Safety Report 20983239 (Version 2)
Quarter: 2022Q3

REPORT INFORMATION
  Report Type: Report from Study
  Country: US (occurrence: US)
  Receive Date: 20220620
  Receipt Date: 20220730
  Transmission Date: 20221026
  Serious: Yes (Hospitalization)
  Sender: FDA-Public Use
  Company Number: US-ABBVIE-22K-163-4438644-00

PATIENT
  Sex: Female
  Weight: 104 kg

DRUGS (4)
  1. SKYRIZI [Suspect]
     Active Substance: RISANKIZUMAB-RZAA
     Indication: Psoriatic arthropathy
     Route: 058
     Dates: start: 20210614, end: 20220614
  2. TYLENOL [Concomitant]
     Active Substance: ACETAMINOPHEN
     Indication: Neck pain
     Route: 048
     Dates: start: 20220614, end: 20220614
  3. IBUPROFEN [Concomitant]
     Active Substance: IBUPROFEN
     Indication: Neck pain
     Route: 048
     Dates: start: 20220614, end: 20220615
  4. ZOFRAN [Concomitant]
     Active Substance: ONDANSETRON HYDROCHLORIDE
     Indication: Nausea
     Route: 048
     Dates: start: 20220614, end: 20220615

REACTIONS (7)
  - Swelling face [Unknown]
  - Cellulitis [Recovered/Resolved with Sequelae]
  - Cellulitis [Recovered/Resolved]
  - Nausea [Unknown]
  - Neck pain [Unknown]
  - Skin swelling [Recovered/Resolved]
  - Erythema [Not Recovered/Not Resolved]

NARRATIVE: CASE EVENT DATE: 20220101
